FAERS Safety Report 14048559 (Version 5)
Quarter: 2018Q2

REPORT INFORMATION
  Report Type: Report from Study
  Country: US (occurrence: US)
  Receive Date: 20171005
  Receipt Date: 20180403
  Transmission Date: 20180711
  Serious: Yes (Hospitalization, Other)
  Sender: FDA-Public Use
  Company Number: US-SA-2017SA111252

PATIENT
  Age: 46 Year
  Sex: Male

DRUGS (1)
  1. LEMTRADA [Suspect]
     Active Substance: ALEMTUZUMAB
     Indication: MULTIPLE SCLEROSIS
     Route: 041
     Dates: start: 20170501, end: 20170505

REACTIONS (31)
  - Influenza like illness [Recovered/Resolved]
  - Pyrexia [Recovered/Resolved]
  - Ataxia [Recovered/Resolved]
  - Multiple sclerosis [Unknown]
  - Tremor [Unknown]
  - Computerised tomogram abnormal [Unknown]
  - Coccidioidomycosis [Not Recovered/Not Resolved]
  - Nasopharyngitis [Recovered/Resolved]
  - Asthenia [Recovered/Resolved]
  - Consciousness fluctuating [Unknown]
  - Muscle spasticity [Recovered/Resolved]
  - Hyperhidrosis [Recovered/Resolved]
  - Tonsillar hypertrophy [Not Recovered/Not Resolved]
  - Arthralgia [Unknown]
  - Neuralgia [Unknown]
  - CD4 lymphocytes abnormal [Not Recovered/Not Resolved]
  - Oropharyngeal pain [Not Recovered/Not Resolved]
  - Feeling of body temperature change [Unknown]
  - Hemiparesis [Recovered/Resolved]
  - Full blood count decreased [Recovered/Resolved]
  - Clonus [Unknown]
  - Feeling abnormal [Recovered/Resolved]
  - Ear infection [Unknown]
  - Rash [Recovered/Resolved]
  - Lymphocyte count decreased [Recovered/Resolved]
  - Respiratory tract congestion [Not Recovered/Not Resolved]
  - Lymphadenopathy [Not Recovered/Not Resolved]
  - Hypoacusis [Unknown]
  - Rocky mountain spotted fever [Not Recovered/Not Resolved]
  - Chills [Unknown]
  - Fatigue [Unknown]

NARRATIVE: CASE EVENT DATE: 20170518
